FAERS Safety Report 10249018 (Version 1)
Quarter: 2014Q2

REPORT INFORMATION
  Report Type: Spontaneous
  Country: US (occurrence: None)
  Receive Date: 20140522
  Receipt Date: 20140522
  Transmission Date: 20141212
  Serious: No
  Sender: FDA-Public Use
  Company Number: 1000065719

PATIENT
  Age: 63 Year
  Sex: Female

DRUGS (6)
  1. TUDORZA PRESSAIR (ACLIDINIUM BROMIDE) (400 MICROGRAM, POWDER) [Suspect]
     Indication: ASTHMA
     Dosage: 800 UG (400 UG, 2 IN 1 D)
     Route: 055
     Dates: start: 2013
  2. ALBUTEROL SULFATE (SALBUTAMOL SULFATE) [Concomitant]
  3. ATROVENT (IPRATROPIUM BROMIDE) [Concomitant]
  4. CLARITIN (LORATADINE) [Concomitant]
  5. AMLODIPINE [Concomitant]
  6. REFRESH TEARS (CARMELLOSE SODIUM) [Concomitant]

REACTIONS (2)
  - Asthma [None]
  - Off label use [None]
